FAERS Safety Report 4945256-1 (Version None)
Quarter: 2006Q1

REPORT INFORMATION
  Report Type: 
  Country: None (occurrence: None)
  Receive Date: 20060316
  Receipt Date: 20060306
  Transmission Date: 20060701
  Serious: Yes (Other)
  Sender: FDA-Public Use
  Company Number: FR-BRISTOL-MYERS SQUIBB COMPANY-13312863

PATIENT
  Age: 2 Year
  Sex: Male

DRUGS (4)
  1. ENDOXAN [Suspect]
     Indication: RHABDOMYOSARCOMA
     Dates: start: 20050524, end: 20050524
  2. NAVELBINE [Suspect]
     Indication: RHABDOMYOSARCOMA
     Route: 042
     Dates: start: 20050301, end: 20050301
  3. BACTRIM [Concomitant]
     Dates: start: 20040601
  4. MOVICOL [Concomitant]
     Dates: start: 20050301

REACTIONS (3)
  - CHEST PAIN [None]
  - COUGH [None]
  - URTICARIA [None]
